FAERS Safety Report 16864181 (Version 2)
Quarter: 2019Q4

REPORT INFORMATION
  Report Type: Spontaneous
  Country: TW (occurrence: TW)
  Receive Date: 20190927
  Receipt Date: 20191008
  Transmission Date: 20200122
  Serious: Yes (Other)
  Sender: FDA-Public Use
  Company Number: TW-GLAXOSMITHKLINE-TW2019APC170257

PATIENT

DRUGS (1)
  1. PANADOL DICLOFENAC OIL PLASTER [Suspect]
     Active Substance: DICLOFENAC
     Indication: PRODUCT USED FOR UNKNOWN INDICATION
     Dosage: UNK, 39+12S

REACTIONS (4)
  - Drug dependence [Unknown]
  - Product complaint [Unknown]
  - Extra dose administered [Unknown]
  - Application site paraesthesia [Unknown]
